FAERS Safety Report 10015445 (Version 1)
Quarter: 2014Q1

REPORT INFORMATION
  Report Type: Spontaneous
  Country: US (occurrence: US)
  Receive Date: 20140317
  Receipt Date: 20140317
  Transmission Date: 20141002
  Serious: Yes (Hospitalization)
  Sender: FDA-Public Use
  Company Number: US-BAXTER-2014BAX012536

PATIENT
  Age: 48 Year
  Sex: Male

DRUGS (1)
  1. DIANEAL LOW CALCIUM (ULTRABAG) [Suspect]
     Indication: PERITONEAL DIALYSIS
     Route: 033

REACTIONS (3)
  - Local swelling [Recovering/Resolving]
  - Ultrafiltration failure [Recovering/Resolving]
  - Abasia [Recovering/Resolving]
